FAERS Safety Report 13571695 (Version 1)
Quarter: 2017Q2

REPORT INFORMATION
  Report Type: Spontaneous
  Country: US (occurrence: US)
  Receive Date: 20170522
  Receipt Date: 20170522
  Transmission Date: 20170830
  Serious: No
  Sender: FDA-Public Use
  Company Number: None

PATIENT
  Age: 59 Year
  Sex: Male
  Weight: 125 kg

DRUGS (1)
  1. ABACAVIR/DOLUTEGRAVIR/LAMIVUDINE [Suspect]
     Active Substance: ABACAVIR SULFATE\DOLUTEGRAVIR SODIUM\LAMIVUDINE
     Route: 048
     Dates: start: 20160301, end: 20160312

REACTIONS (4)
  - Oropharyngeal pain [None]
  - Dyspnoea [None]
  - Rash [None]
  - Cough [None]

NARRATIVE: CASE EVENT DATE: 20160315
